FAERS Safety Report 10389389 (Version 1)
Quarter: 2014Q3

REPORT INFORMATION
  Report Type: Spontaneous
  Country: US (occurrence: None)
  Receive Date: 20140812
  Receipt Date: 20140812
  Transmission Date: 20150326
  Serious: Yes (Hospitalization)
  Sender: FDA-Public Use
  Company Number: LH201400191

PATIENT
  Age: 38 Year
  Sex: Female

DRUGS (1)
  1. MAKENA [Suspect]
     Active Substance: HYDROXYPROGESTERONE CAPROATE
     Indication: PREMATURE DELIVERY
     Dates: start: 201406

REACTIONS (5)
  - Stillbirth [None]
  - Exposure during pregnancy [None]
  - Cervical incompetence [None]
  - Cervix enlargement [None]
  - Premature labour [None]

NARRATIVE: CASE EVENT DATE: 2014
